FAERS Safety Report 17361692 (Version 14)
Quarter: 2020Q4

REPORT INFORMATION
  Report Type: Report from Study
  Country: IL (occurrence: IL)
  Receive Date: 20200203
  Receipt Date: 20201020
  Transmission Date: 20210113
  Serious: Yes (Death, Hospitalization)
  Sender: FDA-Public Use
  Company Number: IL-EISAI MEDICAL RESEARCH-EC-2020-069327

PATIENT
  Age: 70 Year
  Sex: Male
  Weight: 84 kg

DRUGS (26)
  1. DEXAMETHASONE. [Concomitant]
     Active Substance: DEXAMETHASONE
     Dates: start: 20190925, end: 20190925
  2. FUSID [Concomitant]
     Dates: start: 20190925, end: 20190925
  3. DEXAMETHASONE. [Concomitant]
     Active Substance: DEXAMETHASONE
     Dates: start: 20190915, end: 20190927
  4. ALLORIL [Concomitant]
     Active Substance: ALLOPURINOL
     Dates: start: 201807, end: 20191022
  5. PEMBROLIZUMAB. [Suspect]
     Active Substance: PEMBROLIZUMAB
     Route: 041
     Dates: start: 20190925, end: 20190925
  6. CISPLATIN. [Suspect]
     Active Substance: CISPLATIN
     Route: 041
     Dates: start: 20190925, end: 20190925
  7. FENTANYL TRANSDERMAL SYSTEM [Concomitant]
     Active Substance: FENTANYL
     Dates: start: 20190801, end: 20191025
  8. PEMBROLIZUMAB. [Suspect]
     Active Substance: PEMBROLIZUMAB
     Route: 041
     Dates: start: 20191023, end: 20200430
  9. PEMETREXED. [Suspect]
     Active Substance: PEMETREXED
     Dosage: DOSE REDUCED
     Route: 041
     Dates: start: 20191023, end: 20200430
  10. ASPIRIN. [Concomitant]
     Active Substance: ASPIRIN
     Dates: start: 200908, end: 20191005
  11. LENVATINIB [Suspect]
     Active Substance: LENVATINIB
     Indication: NON-SMALL CELL LUNG CANCER METASTATIC
     Route: 048
     Dates: start: 20190801, end: 20200519
  12. CISPLATIN. [Suspect]
     Active Substance: CISPLATIN
     Indication: NON-SMALL CELL LUNG CANCER METASTATIC
     Route: 041
     Dates: start: 20190801, end: 20190822
  13. XGEVA [Concomitant]
     Active Substance: DENOSUMAB
     Dates: start: 20190715, end: 20191013
  14. FOLIC ACID. [Concomitant]
     Active Substance: FOLIC ACID
     Dates: start: 20190708
  15. STATOR [Concomitant]
     Dates: start: 201706
  16. FLEET ENEMA [Suspect]
     Active Substance: SODIUM PHOSPHATE, DIBASIC\SODIUM PHOSPHATE, MONOBASIC
     Indication: CONSTIPATION
     Route: 054
     Dates: start: 20191001, end: 20191001
  17. CALCIUM [Concomitant]
     Active Substance: CALCIUM
     Dates: start: 20190708
  18. UBIDECARENONE. [Concomitant]
     Active Substance: UBIDECARENONE
     Dates: start: 201701
  19. CYANOCOBALAMIN. [Concomitant]
     Active Substance: CYANOCOBALAMIN
     Route: 030
     Dates: start: 201909, end: 201909
  20. PEMETREXED. [Suspect]
     Active Substance: PEMETREXED
     Indication: NON-SMALL CELL LUNG CANCER METASTATIC
     Route: 041
     Dates: start: 20190801, end: 20190822
  21. PEMBROLIZUMAB. [Suspect]
     Active Substance: PEMBROLIZUMAB
     Indication: NON-SMALL CELL LUNG CANCER METASTATIC
     Route: 041
     Dates: start: 20190801, end: 20190822
  22. CISPLATIN. [Suspect]
     Active Substance: CISPLATIN
     Route: 041
     Dates: start: 20191023, end: 20191023
  23. PEMETREXED. [Suspect]
     Active Substance: PEMETREXED
     Route: 041
     Dates: start: 20190925, end: 20190925
  24. LOSARTAN POTASSIUM. [Concomitant]
     Active Substance: LOSARTAN POTASSIUM
     Dates: start: 201902
  25. MAGNESIUM [Concomitant]
     Active Substance: MAGNESIUM
     Dates: start: 201701
  26. AKYNZEO [Concomitant]
     Active Substance: NETUPITANT\PALONOSETRON HYDROCHLORIDE
     Dates: start: 20190925, end: 20190925

REACTIONS (2)
  - Constipation [Recovered/Resolved]
  - Anaemia [Not Recovered/Not Resolved]

NARRATIVE: CASE EVENT DATE: 20190928
